FAERS Safety Report 21230197 (Version 4)
Quarter: 2023Q1

REPORT INFORMATION
  Report Type: Spontaneous
  Country: US (occurrence: US)
  Receive Date: 20220818
  Receipt Date: 20230322
  Transmission Date: 20230418
  Serious: Yes (Other)
  Sender: FDA-Public Use
  Company Number: US-ELI_LILLY_AND_COMPANY-US202208009245

PATIENT
  Sex: Male

DRUGS (4)
  1. CYMBALTA [Suspect]
     Active Substance: DULOXETINE HYDROCHLORIDE
     Indication: Seasonal affective disorder
     Dosage: 30 MG, BID
     Route: 048
  2. CYMBALTA [Suspect]
     Active Substance: DULOXETINE HYDROCHLORIDE
     Dosage: 30 MG, TID
     Route: 065
  3. CYMBALTA [Suspect]
     Active Substance: DULOXETINE HYDROCHLORIDE
     Indication: Seasonal affective disorder
     Dosage: 60 MG, UNKNOWN
     Route: 065
  4. OFEV [Suspect]
     Active Substance: NINTEDANIB
     Indication: Pulmonary fibrosis
     Dosage: UNK UNK, UNKNOWN
     Route: 065

REACTIONS (10)
  - Pulmonary fibrosis [Unknown]
  - Inguinal hernia [Recovered/Resolved]
  - Limb injury [Recovering/Resolving]
  - Arthritis [Recovering/Resolving]
  - Plantar fasciitis [Recovering/Resolving]
  - Dyspepsia [Recovered/Resolved]
  - COVID-19 [Recovered/Resolved]
  - Dizziness [Unknown]
  - Off label use [Unknown]
  - Off label use [Unknown]
